FAERS Safety Report 14380108 (Version 1)
Quarter: 2018Q1

REPORT INFORMATION
  Report Type: Spontaneous
  Country: US (occurrence: US)
  Receive Date: 20180111
  Receipt Date: 20180111
  Transmission Date: 20180509
  Serious: Yes (Hospitalization)
  Sender: FDA-Public Use
  Company Number: None

PATIENT
  Sex: Female

DRUGS (20)
  1. DIAZEPAM. [Concomitant]
     Active Substance: DIAZEPAM
  2. METOCLOPRAM [Concomitant]
     Active Substance: METOCLOPRAMIDE
  3. TAMOXIFEN [Concomitant]
     Active Substance: TAMOXIFEN
  4. VITAMIN D3 [Concomitant]
     Active Substance: CHOLECALCIFEROL
  5. AMBIEN [Concomitant]
     Active Substance: ZOLPIDEM TARTRATE
  6. SUMATRIPTAN. [Concomitant]
     Active Substance: SUMATRIPTAN
  7. TOPIRAMATE. [Concomitant]
     Active Substance: TOPIRAMATE
  8. ZOCOR [Concomitant]
     Active Substance: SIMVASTATIN
  9. SYNTHROID [Concomitant]
     Active Substance: LEVOTHYROXINE SODIUM
  10. ADVAIR HFA [Concomitant]
     Active Substance: FLUTICASONE PROPIONATE\SALMETEROL XINAFOATE
  11. OXYCODONE [Concomitant]
     Active Substance: OXYCODONE
  12. LOVENOX [Concomitant]
     Active Substance: ENOXAPARIN SODIUM
  13. OMEPRAZOLE. [Concomitant]
     Active Substance: OMEPRAZOLE
  14. CYCLOBENZAPR [Concomitant]
     Active Substance: CYCLOBENZAPRINE
  15. HYDROMORPHON [Concomitant]
     Active Substance: HYDROMORPHONE
  16. LYRICA [Concomitant]
     Active Substance: PREGABALIN
  17. SOD BICARB [Concomitant]
  18. IBRANCE [Suspect]
     Active Substance: PALBOCICLIB
     Indication: BREAST CANCER FEMALE
     Route: 048
     Dates: start: 20170810
  19. DICLOFENAC [Concomitant]
     Active Substance: DICLOFENAC
  20. MULTI-VITAMIN [Concomitant]
     Active Substance: .ALPHA.-TOCOPHEROL ACETATE, DL-\ASCORBIC ACID\CYANOCOBALAMIN\FLUORIDE ION\FOLIC ACID\NIACIN\PYRIDOXINE\RIBOFLAVIN\THIAMINE\VITAMIN A\VITAMIN D

REACTIONS (1)
  - Therapy cessation [None]
